FAERS Safety Report 9672233 (Version 1)
Quarter: 2013Q4

REPORT INFORMATION
  Report Type: Spontaneous
  Country: US (occurrence: US)
  Receive Date: 20131106
  Receipt Date: 20131106
  Transmission Date: 20140711
  Serious: No
  Sender: FDA-Public Use
  Company Number: US-ENDO PHARMACEUTICALS INC.-HCDA20110057

PATIENT
  Age: 52 Year
  Sex: Female

DRUGS (2)
  1. HYDROCODONE/ACETAMINOPHEN 10MG/325MG [Suspect]
     Indication: PAIN
     Dosage: UNKNOWN
     Route: 048
     Dates: start: 201102, end: 201106
  2. LAMICTAL [Suspect]
     Indication: BIPOLAR DISORDER
     Dosage: UNKNOWN
     Route: 048

REACTIONS (3)
  - Mood altered [Unknown]
  - Aggression [Unknown]
  - Drug interaction [Unknown]
